FAERS Safety Report 5846181-4 (Version None)
Quarter: 2008Q3

REPORT INFORMATION
  Report Type: 
  Country: None (occurrence: None)
  Receive Date: 20080813
  Receipt Date: 20080731
  Transmission Date: 20090109
  Serious: Yes (Hospitalization)
  Sender: FDA-Public Use
  Company Number: 2008AL009100

PATIENT
  Age: 49 Year
  Sex: Male
  Weight: 127.0072 kg

DRUGS (12)
  1. DIGOXIN [Suspect]
     Indication: ATRIAL FIBRILLATION
     Dosage: 0.25MG BID PO
     Route: 048
     Dates: start: 20010101, end: 20080427
  2. METFORMIN [Concomitant]
  3. DILTIAZEM HCL [Concomitant]
  4. COZAAR [Concomitant]
  5. SOTALOL HCL [Concomitant]
  6. ISOSORBIDE [Concomitant]
  7. MONONITRATE [Concomitant]
  8. GLUCOTROL XL [Concomitant]
  9. ASPIRIN [Concomitant]
  10. LANTUS [Concomitant]
  11. NOVOLOG [Concomitant]
  12. COUMADIN [Concomitant]

REACTIONS (2)
  - DISORIENTATION [None]
  - HYPERHIDROSIS [None]
